FAERS Safety Report 9941879 (Version 1)
Quarter: 2014Q1

REPORT INFORMATION
  Report Type: Report from Study
  Country: US (occurrence: US)
  Receive Date: 20140303
  Receipt Date: 20140303
  Transmission Date: 20141002
  Serious: No
  Sender: FDA-Public Use
  Company Number: US-ABBVIE-13P-163-1040082-00

PATIENT
  Age: 62 Year
  Sex: Male

DRUGS (8)
  1. HUMIRA [Suspect]
     Indication: PSORIATIC ARTHROPATHY
     Dates: start: 201208
  2. HUMIRA [Suspect]
  3. METOPROLOL [Concomitant]
     Indication: HYPERTENSION
  4. MORPHINE SULFATE [Concomitant]
     Indication: PAIN
     Dosage: AT NIGHT
  5. VYTORIN [Concomitant]
     Indication: PRODUCT USED FOR UNKNOWN INDICATION
     Dosage: SWITCHED TO UNKNOWN CHOLESTEROL MED, DUE TO INSURANCE REASONS
  6. TRICOR [Concomitant]
     Indication: PRODUCT USED FOR UNKNOWN INDICATION
     Dosage: SWITCHED TO UNKNOWN CHOLESTEROL MED, DUE TO INSURANCE REASONS
  7. UNKNOWN CHOLESTEROL MEDICATION [Concomitant]
     Indication: PRODUCT USED FOR UNKNOWN INDICATION
     Dosage: AT NIGHT
  8. NORVASC [Concomitant]
     Indication: BLOOD PRESSURE

REACTIONS (3)
  - Drug ineffective [Not Recovered/Not Resolved]
  - Injection site pain [Not Recovered/Not Resolved]
  - Pain [Not Recovered/Not Resolved]
